FAERS Safety Report 9589620 (Version 1)
Quarter: 2013Q4

REPORT INFORMATION
  Report Type: Spontaneous
  Country: US (occurrence: US)
  Receive Date: 20131003
  Receipt Date: 20131003
  Transmission Date: 20140711
  Serious: No
  Sender: FDA-Public Use
  Company Number: US-AMGEN-USASP2012071043

PATIENT
  Sex: Male
  Weight: 117.91 kg

DRUGS (10)
  1. ENBREL [Suspect]
     Indication: RHEUMATOID ARTHRITIS
     Dosage: 50 MG, QWK
     Route: 058
  2. TIKOSYN [Concomitant]
     Dosage: 125 MUG, UNK
  3. NEXIUM                             /01479302/ [Concomitant]
     Dosage: 20MG
  4. AMLODIPINE [Concomitant]
     Dosage: 2.5MG
  5. METOPROLOL                         /00376902/ [Concomitant]
     Dosage: 25 MG, UNK
  6. CELEBREX [Concomitant]
     Dosage: 100MG
  7. LIPITOR [Concomitant]
     Dosage: 10 MG, UNK
  8. CITALOPRAM [Concomitant]
     Dosage: 10 MG, UNK
  9. ASPIRIN LOW [Concomitant]
     Dosage: 81 MG, UNK
  10. AZATHIOPRINE [Concomitant]
     Dosage: 50 MG, UNK

REACTIONS (1)
  - Drug ineffective [Unknown]
